FAERS Safety Report 10239587 (Version 2)
Quarter: 2014Q2

REPORT INFORMATION
  Report Type: Spontaneous
  Country: US (occurrence: US)
  Receive Date: 20140616
  Receipt Date: 20140618
  Transmission Date: 20141212
  Serious: No
  Sender: FDA-Public Use
  Company Number: US-009507513-1406USA003984

PATIENT
  Age: 27 Year
  Sex: Female
  Weight: 55.87 kg

DRUGS (1)
  1. NEXPLANON [Suspect]
     Indication: CONTRACEPTION
     Dosage: UNK
     Route: 059
     Dates: start: 20140514

REACTIONS (3)
  - Device deployment issue [Recovered/Resolved]
  - Product quality issue [Unknown]
  - No adverse event [Unknown]
